FAERS Safety Report 7336745 (Version 2)
Quarter: 2013Q1

REPORT INFORMATION
  Report Type: Spontaneous
  Country: US (occurrence: US)
  Receive Date: 20100330
  Receipt Date: 20130308
  Transmission Date: 20140127
  Serious: No
  Sender: FDA-Public Use
  Company Number: US-BIOGENIDEC-2010BI007215

PATIENT
  Age: 42 Year
  Sex: Female

DRUGS (2)
  1. TYSABRI [Suspect]
     Indication: MULTIPLE SCLEROSIS
     Route: 042
     Dates: start: 20070306, end: 20100201
  2. TYSABRI [Suspect]
     Indication: MULTIPLE SCLEROSIS
     Route: 042

REACTIONS (3)
  - Diarrhoea [Recovered/Resolved]
  - Headache [Recovered/Resolved]
  - Bronchitis [Recovered/Resolved]
